FAERS Safety Report 22356591 (Version 2)
Quarter: 2023Q2

REPORT INFORMATION
  Report Type: Other
  Country: IL (occurrence: None)
  Receive Date: 20230523
  Receipt Date: 20230525
  Transmission Date: 20230721
  Serious: No
  Sender: FDA-Public Use
  Company Number: IL-ROCHE-3354376

PATIENT
  Age: 37 Year
  Sex: Male

DRUGS (1)
  1. OCREVUS [Suspect]
     Active Substance: OCRELIZUMAB
     Indication: Relapsing multiple sclerosis
     Route: 042
     Dates: start: 20190123

REACTIONS (1)
  - Paraesthesia [Recovered/Resolved]

NARRATIVE: CASE EVENT DATE: 20230522
